FAERS Safety Report 19162843 (Version 1)
Quarter: 2021Q2

REPORT INFORMATION
  Report Type: Spontaneous
  Country: US (occurrence: US)
  Receive Date: 20210420
  Receipt Date: 20210420
  Transmission Date: 20210717
  Serious: No
  Sender: FDA-Public Use
  Company Number: None

PATIENT
  Sex: Male

DRUGS (1)
  1. GAMUNEX?C [Suspect]
     Active Substance: HUMAN IMMUNOGLOBULIN G
     Indication: HYPOGAMMAGLOBULINAEMIA
     Dosage: ?          OTHER DOSE:20GM;OTHER FREQUENCY:EVERY 3 WEEKS;?
     Route: 042
     Dates: start: 20200221

REACTIONS (2)
  - Anaphylactic reaction [None]
  - Product quality issue [None]
